FAERS Safety Report 10476438 (Version 4)
Quarter: 2015Q1

REPORT INFORMATION
  Report Type: Report from Study
  Country: US (occurrence: US)
  Receive Date: 20140925
  Receipt Date: 20150326
  Transmission Date: 20150720
  Serious: Yes (Hospitalization, Other)
  Sender: FDA-Public Use
  Company Number: US-ALEXION PHARMACEUTICALS INC.-A201403684

PATIENT

DRUGS (1)
  1. SOLIRIS [Suspect]
     Active Substance: ECULIZUMAB
     Indication: PRODUCT USED FOR UNKNOWN INDICATION
     Dosage: UNK
     Route: 042
     Dates: end: 20140918

REACTIONS (5)
  - Blood lactate dehydrogenase increased [Not Recovered/Not Resolved]
  - Drug ineffective [Recovered/Resolved]
  - Unevaluable event [Unknown]
  - Platelet count decreased [Not Recovered/Not Resolved]
  - Graft versus host disease [Unknown]

NARRATIVE: CASE EVENT DATE: 20140923
